FAERS Safety Report 12403381 (Version 1)
Quarter: 2016Q2

REPORT INFORMATION
  Report Type: Spontaneous
  Country: AU (occurrence: AU)
  Receive Date: 20160525
  Receipt Date: 20160525
  Transmission Date: 20160815
  Serious: Yes (Hospitalization)
  Sender: FDA-Public Use
  Company Number: AU-009507513-1605AUS011494

PATIENT
  Age: 54 Year
  Sex: Male

DRUGS (2)
  1. VIEKIRA PAK [Suspect]
     Active Substance: DASABUVIR\OMBITASVIR\PARITAPREVIR\RITONAVIR
     Dosage: UNK
     Route: 048
     Dates: start: 20151120
  2. RIBAVIRIN. [Suspect]
     Active Substance: RIBAVIRIN
     Dosage: UNK
     Route: 048
     Dates: start: 20151120

REACTIONS (10)
  - Fatigue [Unknown]
  - Gastrointestinal disorder [Unknown]
  - Abdominal distension [Unknown]
  - Gout [Unknown]
  - Hepatomegaly [Unknown]
  - Constipation [Unknown]
  - Rash generalised [Unknown]
  - Respiratory disorder [Unknown]
  - Abasia [Unknown]
  - Nausea [Unknown]

NARRATIVE: CASE EVENT DATE: 20151120
